FAERS Safety Report 9440620 (Version 1)
Quarter: 2013Q3

REPORT INFORMATION
  Report Type: Report from Study
  Country: US (occurrence: US)
  Receive Date: 20130805
  Receipt Date: 20130805
  Transmission Date: 20140515
  Serious: Yes (Hospitalization)
  Sender: FDA-Public Use
  Company Number: US-ACTELION-A-US2013-86478

PATIENT
  Age: 66 Year
  Sex: Female

DRUGS (7)
  1. TRACLEER [Suspect]
     Indication: PULMONARY ARTERIAL HYPERTENSION
     Dosage: 125
     Route: 048
     Dates: start: 2003
  2. GABAPENTIN [Concomitant]
     Dosage: UNK
  3. ROPINIROLE [Concomitant]
     Dosage: 600 MG, QD
  4. EFFEXOR [Concomitant]
     Dosage: 150 MG, QD
  5. ATENOLOL [Concomitant]
     Dosage: 25 MG, QD
  6. AMILORIDE W/HYDROCHLOROTHIAZIDE [Concomitant]
     Dosage: UNK
  7. SEROQUEL [Concomitant]
     Dosage: 75 MG, QPM

REACTIONS (2)
  - Gastric bypass [Recovered/Resolved]
  - Gastric banding [Recovered/Resolved]
